FAERS Safety Report 17524650 (Version 3)
Quarter: 2022Q4

REPORT INFORMATION
  Report Type: Spontaneous
  Country: PL (occurrence: PL)
  Receive Date: 20200310
  Receipt Date: 20221110
  Transmission Date: 20230113
  Serious: Yes (Other)
  Sender: FDA-Public Use
  Company Number: PL-UCBSA-2020006967

PATIENT
  Age: 25 Year
  Sex: Female

DRUGS (14)
  1. KEPPRA [Suspect]
     Active Substance: LEVETIRACETAM
     Indication: Partial seizures
     Dosage: 3 GRAM DAILY
  2. VIMPAT [Suspect]
     Active Substance: LACOSAMIDE
     Indication: Epilepsy
     Dosage: DOSES GRADUALLY INCREASING TO 400 MG PER DAY
  3. OXCARBAZEPINE [Suspect]
     Active Substance: OXCARBAZEPINE
     Indication: Product used for unknown indication
     Dosage: UNKNOWN DOSE
  4. TOPIRAMATE [Suspect]
     Active Substance: TOPIRAMATE
     Indication: Seizure
     Dosage: UNKNOWN DOSE
     Route: 048
  5. TIAGABINE HYDROCHLORIDE [Suspect]
     Active Substance: TIAGABINE HYDROCHLORIDE
     Indication: Epilepsy
     Dosage: DOSES INCREASING TO 20 MG DAILY
  6. VALPROIC ACID [Suspect]
     Active Substance: VALPROIC ACID
     Indication: Seizure
     Dosage: UNKNOWN DOSE
  7. VALPROIC ACID [Suspect]
     Active Substance: VALPROIC ACID
     Indication: Epilepsy
  8. ETHINYL ESTRADIOL [Suspect]
     Active Substance: ETHINYL ESTRADIOL
     Indication: Amenorrhoea
     Dosage: UNK
     Route: 062
  9. ETHINYL ESTRADIOL [Suspect]
     Active Substance: ETHINYL ESTRADIOL
     Indication: Hormone replacement therapy
  10. LAMOTRIGINE [Concomitant]
     Active Substance: LAMOTRIGINE
     Indication: Seizure
     Dosage: 300 MILLIGRAM DAILY
  11. LAMOTRIGINE [Concomitant]
     Active Substance: LAMOTRIGINE
     Dosage: GRADUALLY INCREASING DOSES UP TO 250 MG PER DAY
  12. METFORMIN [Concomitant]
     Active Substance: METFORMIN HYDROCHLORIDE
     Indication: Insulin resistance
     Dosage: UNKNOWN DOSE
  13. NORELGESTROMIN [Concomitant]
     Active Substance: NORELGESTROMIN
     Indication: Amenorrhoea
  14. NORELGESTROMIN [Concomitant]
     Active Substance: NORELGESTROMIN
     Indication: Hormone replacement therapy

REACTIONS (6)
  - Seizure [Recovering/Resolving]
  - Multiple-drug resistance [Unknown]
  - Disturbance in attention [Recovered/Resolved]
  - Dizziness [Unknown]
  - Learning disorder [Unknown]
  - Educational problem [Recovered/Resolved]
